FAERS Safety Report 9067713 (Version 1)
Quarter: 2013Q1

REPORT INFORMATION
  Report Type: Spontaneous
  Country: IT (occurrence: IT)
  Receive Date: 20130206
  Receipt Date: 20130206
  Transmission Date: 20140127
  Serious: Yes (Hospitalization)
  Sender: FDA-Public Use
  Company Number: IT-BAYER-2013-012274

PATIENT
  Age: 71 Year
  Sex: Male

DRUGS (7)
  1. CARDIOASPIRIN [Suspect]
     Indication: THROMBOSIS PROPHYLAXIS
     Dosage: 100 MG, QD
     Route: 048
     Dates: start: 20020101, end: 20130102
  2. CANRENONE [Concomitant]
  3. PERINDOPRIL [Concomitant]
  4. MIRTAZAPINE [Concomitant]
  5. OMEGA-3 FATTY ACIDS [Concomitant]
  6. AMINO ACIDS [Concomitant]
  7. ATENOLOL [Concomitant]

REACTIONS (3)
  - Cerebral haemorrhage [Unknown]
  - Dysarthria [Unknown]
  - Confusional state [Unknown]
